FAERS Safety Report 4524594-0 (Version None)
Quarter: 2004Q4

REPORT INFORMATION
  Report Type: 
  Country: None (occurrence: None)
  Receive Date: 20041117
  Receipt Date: 20040629
  Transmission Date: 20050328
  Serious: Yes (Life-Threatening)
  Sender: FDA-Public Use
  Company Number: US-JNJFOC-20040705647

PATIENT
  Age: 67 Year
  Sex: Female

DRUGS (9)
  1. LEVOFLOXACIN [Suspect]
     Indication: PNEUMONIA
     Dosage: 500 MG, 1 IN 1 DAY, ORAL
     Route: 048
     Dates: start: 20030314, end: 20030314
  2. SOTALOL HCL [Suspect]
     Indication: ATRIAL FIBRILLATION
     Dosage: 80 MG, 2 IN 1 DAY, ORAL
     Route: 048
     Dates: start: 20030301, end: 20030314
  3. ASPIRIN [Concomitant]
  4. METOPROLOL TARTRATE [Concomitant]
  5. PROCARDIA [Concomitant]
  6. RANITIDINE [Concomitant]
  7. SL NITROGLYCERINE (GLYCERYL TRINITRATE) [Concomitant]
  8. TRAZODONE HCL (TRAZODONE HYDROCHLORIDE) [Concomitant]
  9. WARFARIN SODIUM [Concomitant]

REACTIONS (4)
  - COMA [None]
  - DYSPNOEA [None]
  - FLUID OVERLOAD [None]
  - TORSADE DE POINTES [None]
